FAERS Safety Report 7115230-8 (Version None)
Quarter: 2010Q4

REPORT INFORMATION
  Report Type: 
  Country: None (occurrence: None)
  Receive Date: 20101122
  Receipt Date: 20101115
  Transmission Date: 20110411
  Serious: Yes (Life-Threatening, Hospitalization)
  Sender: FDA-Public Use
  Company Number: PHHY2010DE77540

PATIENT
  Age: 85 Year
  Sex: Male

DRUGS (12)
  1. RASILEZ [Suspect]
     Indication: HYPERTENSION
     Dosage: 150 MG, QD
     Route: 048
     Dates: end: 20080411
  2. DIGITOXIN [Suspect]
     Indication: TACHYARRHYTHMIA
     Dosage: 0.07 MG
     Route: 048
     Dates: end: 20080412
  3. TORASEMIDE [Suspect]
     Indication: HYPERTENSION
     Dosage: 20 MG AT MORNING, 10 MG AT AFTERNOON
     Route: 048
     Dates: end: 20100411
  4. MICARDIS HCT [Suspect]
     Indication: HYPERTENSION
     Dosage: 12.5/40 MG
     Route: 048
     Dates: end: 20080411
  5. FALITHROM ^HEXAL^ [Concomitant]
     Indication: AORTIC VALVE REPLACEMENT
     Dosage: UNK
     Route: 048
     Dates: start: 19940101
  6. PLASTULEN [Concomitant]
     Indication: IRON DEFICIENCY
     Dosage: UNK
     Route: 048
  7. METAMIZOL NATRIUM [Concomitant]
     Indication: PAIN
     Dosage: 750 MG, FOUR SEPERATE DOSAGES
     Route: 048
  8. RISPERDAL [Concomitant]
     Indication: DEMENTIA
     Dosage: 1 MG, QD
     Route: 048
  9. ALENDRONIC ACID [Concomitant]
     Indication: RIB FRACTURE
     Dosage: 10 MG, QD
     Route: 048
  10. PREGABALIN [Concomitant]
     Indication: PAIN
     Dosage: 25 MG, QD
     Route: 048
  11. PIPAMPERONE [Concomitant]
     Indication: PAIN
     Dosage: 10 MG AT MORNING AND 20 MG AT EVENING
     Route: 048
  12. FENTANYL [Concomitant]
     Indication: PAIN
     Dosage: 1800 UG ONCE DAILY
     Route: 062

REACTIONS (15)
  - ATRIAL FIBRILLATION [None]
  - BRADYARRHYTHMIA [None]
  - CARDIAC PACEMAKER INSERTION [None]
  - CYANOSIS [None]
  - DEHYDRATION [None]
  - DILATATION ATRIAL [None]
  - FALL [None]
  - HYPERTROPHY [None]
  - HYPOTENSION [None]
  - LACERATION [None]
  - PLEURAL EFFUSION [None]
  - PULMONARY HYPERTENSION [None]
  - SYNCOPE [None]
  - TRICUSPID VALVE INCOMPETENCE [None]
  - WOUND [None]
